FAERS Safety Report 5812434-9 (Version None)
Quarter: 2008Q3

REPORT INFORMATION
  Report Type: 
  Country: None (occurrence: None)
  Receive Date: 20080711
  Receipt Date: 20080626
  Transmission Date: 20090109
  Serious: Yes (Hospitalization)
  Sender: FDA-Public Use
  Company Number: 013526

PATIENT
  Age: 36 Year
  Sex: Male

DRUGS (13)
  1. PRIALT [Suspect]
     Indication: POST LAMINECTOMY SYNDROME
     Dosage: SEE IMAGE, INTRATHECAL
     Route: 037
     Dates: start: 20080227, end: 20080229
  2. PRIALT [Suspect]
     Indication: POST LAMINECTOMY SYNDROME
     Dosage: SEE IMAGE, INTRATHECAL
     Route: 037
     Dates: start: 20080229, end: 20080305
  3. PRIALT [Suspect]
     Indication: POST LAMINECTOMY SYNDROME
     Dosage: SEE IMAGE, INTRATHECAL
     Route: 037
     Dates: start: 20080305, end: 20080311
  4. PRIALT [Suspect]
     Indication: POST LAMINECTOMY SYNDROME
     Dosage: SEE IMAGE, INTRATHECAL
     Route: 037
     Dates: start: 20080311, end: 20080314
  5. PRIALT [Suspect]
     Indication: POST LAMINECTOMY SYNDROME
     Dosage: SEE IMAGE, INTRATHECAL
     Route: 037
     Dates: start: 20080314, end: 20080328
  6. PRIALT [Suspect]
     Indication: POST LAMINECTOMY SYNDROME
     Dosage: SEE IMAGE, INTRATHECAL
     Route: 037
     Dates: start: 20080328, end: 20080401
  7. PRIALT [Suspect]
     Indication: POST LAMINECTOMY SYNDROME
     Dosage: SEE IMAGE, INTRATHECAL
     Route: 037
     Dates: start: 20080401, end: 20080527
  8. PRIALT [Suspect]
     Indication: POST LAMINECTOMY SYNDROME
     Dosage: SEE IMAGE, INTRATHECAL
     Route: 037
     Dates: start: 20080527
  9. PHENPROCOUMON(PHENPROCOUMON) [Suspect]
     Indication: DEEP VEIN THROMBOSIS
     Dosage: ORAL
     Route: 048
  10. HYDROMORPHONE HCL [Concomitant]
  11. CODICONTIN (DIHYDROCODEINE BITARTRATE) [Concomitant]
  12. TRAMADOL HCL [Concomitant]
  13. BETA BLOCKING AGENTS [Concomitant]

REACTIONS (5)
  - BALANCE DISORDER [None]
  - CONFUSIONAL STATE [None]
  - DIZZINESS [None]
  - DRUG WITHDRAWAL SYNDROME [None]
  - HAEMORRHAGE [None]
